FAERS Safety Report 8762786 (Version 1)
Quarter: 2012Q4

REPORT INFORMATION
  Report Type: 
  Country: AU (occurrence: AU)
  Receive Date: 20120830
  Receipt Date: 20120830
  Transmission Date: 20130627
  Serious: Yes (Other)
  Sender: FDA-Public Use
  Company Number: AU-PFIZER INC-2012210383

PATIENT
  Sex: Female

DRUGS (3)
  1. PRISTIQ [Suspect]
     Dosage: 100 mg, UNK
  2. PRISTIQ [Suspect]
     Dosage: 50 mg, UNK
     Dates: start: 2012, end: 2012
  3. PRISTIQ [Suspect]
     Dosage: 25 mg, UNK
     Dates: start: 2012

REACTIONS (4)
  - Withdrawal syndrome [Unknown]
  - Mental impairment [Unknown]
  - Dizziness [Unknown]
  - Nausea [Unknown]
